FAERS Safety Report 18246037 (Version 3)
Quarter: 2024Q3

REPORT INFORMATION
  Report Type: Report from Study
  Country: US (occurrence: None)
  Receive Date: 20200909
  Receipt Date: 20240716
  Transmission Date: 20241017
  Serious: Yes (Other)
  Sender: ASTRAZENECA
  Company Number: 2020SF13118

PATIENT
  Age: 63 Year
  Sex: Female

DRUGS (25)
  1. FASENRA [Suspect]
     Active Substance: BENRALIZUMAB
     Indication: Asthma
     Route: 058
  2. ALBUTEROL [Concomitant]
     Active Substance: ALBUTEROL
  3. ALDACTONE [Concomitant]
     Active Substance: SPIRONOLACTONE
  4. ASPIRIN [Concomitant]
     Active Substance: ASPIRIN
  5. CLARITIN [Concomitant]
     Active Substance: LORATADINE
  6. COLCHICINE [Concomitant]
     Active Substance: COLCHICINE
  7. COLACE [Concomitant]
     Active Substance: DOCUSATE SODIUM
  8. FOSAMAX [Concomitant]
     Active Substance: ALENDRONATE SODIUM
  9. FUROSEMIDE [Concomitant]
     Active Substance: FUROSEMIDE
  10. HYDROCHLOROTHIAZIDE [Concomitant]
     Active Substance: HYDROCHLOROTHIAZIDE
  11. MAGNESIUM CARBONATE [Concomitant]
     Active Substance: MAGNESIUM CARBONATE
  12. MIRALAX [Concomitant]
     Active Substance: POLYETHYLENE GLYCOL 3350
  13. MYLANTA [Concomitant]
     Active Substance: ALUMINUM HYDROXIDE\DIMETHICONE\MAGNESIUM HYDROXIDE
  14. OMEGA 3 [Concomitant]
     Active Substance: CAPSAICIN
  15. PLAQUENIL [Concomitant]
     Active Substance: HYDROXYCHLOROQUINE SULFATE
  16. POTASSIUM [Concomitant]
     Active Substance: POTASSIUM
  17. PREDNISONE [Concomitant]
     Active Substance: PREDNISONE
  18. PROVENTIL [Concomitant]
     Active Substance: ALBUTEROL
  19. SINGULAIR [Concomitant]
     Active Substance: MONTELUKAST SODIUM
  20. SPIRIVA [Concomitant]
     Active Substance: TIOTROPIUM BROMIDE MONOHYDRATE
  21. VALTREX [Concomitant]
     Active Substance: VALACYCLOVIR HYDROCHLORIDE
  22. VITAMIN B COMPLEX [Concomitant]
     Active Substance: CYANOCOBALAMIN\DEXPANTHENOL\NIACINAMIDE\PYRIDOXINE HYDROCHLORIDE\RIBOFLAVIN 5^-PHOSPHATE SODIUM\THIA
  23. VITAMIN C [Concomitant]
     Active Substance: ASCORBIC ACID
  24. VITAMIN D [Concomitant]
     Active Substance: VITAMIN D NOS
  25. XOLAIR [Concomitant]
     Active Substance: OMALIZUMAB

REACTIONS (4)
  - Cough [Unknown]
  - Arthralgia [Unknown]
  - Asthenia [Unknown]
  - Somnolence [Unknown]
